FAERS Safety Report 5564622-7 (Version None)
Quarter: 2007Q4

REPORT INFORMATION
  Report Type: 
  Country: None (occurrence: None)
  Receive Date: 20071218
  Receipt Date: 20071206
  Transmission Date: 20080405
  Serious: Yes (Other)
  Sender: FDA-Public Use
  Company Number: US-AMGEN-STX255922

PATIENT
  Sex: Female

DRUGS (2)
  1. ENBREL [Suspect]
     Indication: PSORIATIC ARTHROPATHY
     Route: 058
     Dates: start: 20070301
  2. METHOTREXATE [Concomitant]
     Route: 065
     Dates: start: 20060901

REACTIONS (3)
  - ANTIPHOSPHOLIPID SYNDROME [None]
  - PSYCHOTIC DISORDER [None]
  - USHER'S SYNDROME [None]
